FAERS Safety Report 15049571 (Version 2)
Quarter: 2018Q2

REPORT INFORMATION
  Report Type: Spontaneous
  Country: US (occurrence: US)
  Receive Date: 20180622
  Receipt Date: 20180628
  Transmission Date: 20180711
  Serious: Yes (Other)
  Sender: FDA-Public Use
  Company Number: US-DRREDDYS-USA/USA/18/0100607

PATIENT
  Age: 70 Year
  Sex: Male

DRUGS (4)
  1. DOXORUBICIN HYDROCHLORIDE LIPOSOME INJECTION 20 MG/10 ML (2 MG/ML) AND [Suspect]
     Active Substance: DOXORUBICIN HYDROCHLORIDE
     Indication: BLADDER TRANSITIONAL CELL CARCINOMA STAGE II
     Dosage: ON DAY 1 EVERY 2 WEEKS
     Route: 042
  2. CISPLATIN. [Suspect]
     Active Substance: CISPLATIN
     Indication: BLADDER TRANSITIONAL CELL CARCINOMA STAGE II
     Dosage: ON DAY 1 EVERY 2 WEEKS
     Route: 042
  3. VINBLASTIN [Suspect]
     Active Substance: VINBLASTINE
     Indication: BLADDER TRANSITIONAL CELL CARCINOMA STAGE II
     Dosage: ON DAY 1 EVERY 2 WEEKS
     Route: 042
  4. METHOTREXATE. [Suspect]
     Active Substance: METHOTREXATE
     Indication: BLADDER TRANSITIONAL CELL CARCINOMA STAGE II
     Dosage: ON DAY 1 EVERY 2 WEEKS
     Route: 042

REACTIONS (4)
  - Decreased appetite [Unknown]
  - Cytopenia [Unknown]
  - Fatigue [Unknown]
  - Nausea [Unknown]
